FAERS Safety Report 25223735 (Version 1)
Quarter: 2025Q2

REPORT INFORMATION
  Report Type: Spontaneous
  Country: FR (occurrence: FR)
  Receive Date: 20250422
  Receipt Date: 20250422
  Transmission Date: 20250717
  Serious: Yes (Other)
  Sender: TAKEDA
  Company Number: None

PATIENT
  Age: 77 Year
  Sex: Female

DRUGS (4)
  1. ALUNBRIG [Suspect]
     Active Substance: BRIGATINIB
     Indication: Bronchial carcinoma
     Dosage: 90 MILLIGRAM, QD
     Dates: start: 20210902
  2. FLUDROCORTISONE ACETATE [Concomitant]
     Active Substance: FLUDROCORTISONE ACETATE
     Indication: Adrenal insufficiency
     Dosage: 50 MICROGRAM PER GRAM, QD
     Dates: start: 2008
  3. HYDROCORTISONE ACETATE [Concomitant]
     Active Substance: HYDROCORTISONE ACETATE
     Indication: Adrenal insufficiency
     Dosage: 25 MILLIGRAM, QD
     Dates: start: 2008
  4. LEVOTHYROXINE SODIUM [Concomitant]
     Active Substance: LEVOTHYROXINE SODIUM
     Indication: Autoimmune thyroiditis
     Dosage: 75 MICROGRAM, QD
     Dates: start: 2008

REACTIONS (4)
  - Dermatitis acneiform [Not Recovered/Not Resolved]
  - Urinary tract infection [Not Recovered/Not Resolved]
  - Sicca syndrome [Not Recovered/Not Resolved]
  - Basal cell carcinoma [Recovered/Resolved with Sequelae]

NARRATIVE: CASE EVENT DATE: 20220101
